FAERS Safety Report 24212019 (Version 1)
Quarter: 2024Q3

REPORT INFORMATION
  Report Type: Report from Study
  Country: JP (occurrence: JP)
  Receive Date: 20240814
  Receipt Date: 20240814
  Transmission Date: 20241016
  Serious: Yes (Other)
  Sender: TAKEDA
  Company Number: JP-TAKEDA-2024TJP011965

PATIENT
  Age: 37 Year
  Sex: Female

DRUGS (1)
  1. VONICOG ALFA [Suspect]
     Active Substance: VONICOG ALFA
     Indication: Von Willebrand^s disease
     Dosage: UNK
     Route: 065
     Dates: start: 20230126

REACTIONS (2)
  - Hypothyroidism [Not Recovered/Not Resolved]
  - Hypoparathyroidism [Not Recovered/Not Resolved]

NARRATIVE: CASE EVENT DATE: 20230127
